FAERS Safety Report 13139325 (Version 1)
Quarter: 2017Q1

REPORT INFORMATION
  Report Type: Spontaneous
  Country: US (occurrence: US)
  Receive Date: 20170123
  Receipt Date: 20170123
  Transmission Date: 20170428
  Serious: No
  Sender: FDA-Public Use
  Company Number: US-MISSION PHARMACAL COMPANY-1062292

PATIENT
  Age: 14 Year
  Sex: Female

DRUGS (2)
  1. THIOLA [Suspect]
     Active Substance: TIOPRONIN
     Indication: NEPHROLITHIASIS
     Route: 065
     Dates: start: 20161212
  2. TORDAL [Concomitant]
     Route: 065

REACTIONS (2)
  - Epigastric discomfort [Recovering/Resolving]
  - Nightmare [Unknown]
